FAERS Safety Report 5541494-8 (Version None)
Quarter: 2007Q4

REPORT INFORMATION
  Report Type: 
  Country: None (occurrence: None)
  Receive Date: 20071210
  Receipt Date: 20071130
  Transmission Date: 20080405
  Serious: Yes (Other)
  Sender: FDA-Public Use
  Company Number: GB-JNJFOC-20071200952

PATIENT
  Sex: Female
  Weight: 100 kg

DRUGS (7)
  1. REMICADE [Suspect]
     Indication: JUVENILE ARTHRITIS
     Route: 042
  2. DF 118 [Concomitant]
  3. FERROUS SULFATE TAB [Concomitant]
  4. PARACETAMOL [Concomitant]
  5. PREDNISOLONE [Concomitant]
  6. LEVOTHYROXINE SODIUM [Concomitant]
  7. VOLTAREN [Concomitant]

REACTIONS (1)
  - NON-SMALL CELL LUNG CANCER [None]
